FAERS Safety Report 9522081 (Version 1)
Quarter: 2013Q3

REPORT INFORMATION
  Report Type: Spontaneous
  Country: NL (occurrence: NL)
  Receive Date: 20130913
  Receipt Date: 20130913
  Transmission Date: 20140515
  Serious: Yes (Other)
  Sender: FDA-Public Use
  Company Number: NL-PFIZER INC-2013260606

PATIENT
  Age: 69 Year
  Sex: Female

DRUGS (1)
  1. REVATIO [Suspect]
     Dosage: 20 MG, 3X/DAY
     Dates: end: 20130904

REACTIONS (2)
  - Visual acuity reduced [Unknown]
  - Fluid retention [Unknown]
